FAERS Safety Report 6059281-3 (Version None)
Quarter: 2009Q1

REPORT INFORMATION
  Report Type: 
  Country: None (occurrence: None)
  Receive Date: 20090130
  Receipt Date: 20090119
  Transmission Date: 20090719
  Serious: Yes (Hospitalization)
  Sender: FDA-Public Use
  Company Number: US-ROCHE-610182

PATIENT
  Age: 75 Year
  Sex: Female

DRUGS (7)
  1. CAPECITABINE [Suspect]
     Route: 065
  2. OXALIPLATIN [Suspect]
     Route: 065
  3. OXALIPLATIN [Suspect]
     Dosage: SWITCHED FOLLOWING PROGRESSION OF DISEASE
     Route: 065
  4. FLUOROURACIL [Suspect]
     Dosage: DRUG ALSO REPORTED AS 5-FU
     Route: 065
  5. IRINOTECAN HCL [Suspect]
     Route: 065
  6. LEUCOVORIN [Suspect]
     Route: 065
  7. CETUXIMAB [Suspect]
     Route: 065

REACTIONS (1)
  - STRESS CARDIOMYOPATHY [None]
